FAERS Safety Report 4802433-8 (Version None)
Quarter: 2005Q4

REPORT INFORMATION
  Report Type: 
  Country: None (occurrence: None)
  Receive Date: 20051013
  Receipt Date: 20050930
  Transmission Date: 20060501
  Serious: Yes (Disabling, Other)
  Sender: FDA-Public Use
  Company Number: 2005136886

PATIENT
  Sex: Female
  Weight: 87.0906 kg

DRUGS (1)
  1. DETROL LA [Suspect]
     Indication: URINARY INCONTINENCE
     Dosage: 4 MG (4 MG, 1 IN 1 D), ORAL; 3-4 YEARS AGO
     Route: 048

REACTIONS (5)
  - CATARACT [None]
  - DISEASE RECURRENCE [None]
  - EMPHYSEMA [None]
  - THROMBOSIS [None]
  - VISION BLURRED [None]
